FAERS Safety Report 12666510 (Version 1)
Quarter: 2016Q3

REPORT INFORMATION
  Report Type: Report from Study
  Country: US (occurrence: US)
  Receive Date: 20160819
  Receipt Date: 20160819
  Transmission Date: 20161109
  Serious: No
  Sender: FDA-Public Use
  Company Number: US-AMGEN-USASL2016105685

PATIENT
  Age: 52 Year
  Sex: Female

DRUGS (2)
  1. ENBREL [Suspect]
     Active Substance: ETANERCEPT
     Indication: PSORIATIC ARTHROPATHY
     Dosage: 50 MG, QWK
     Route: 065
     Dates: start: 20160627
  2. PREDNISONE. [Concomitant]
     Active Substance: PREDNISONE
     Dosage: UNK

REACTIONS (6)
  - Drug effect incomplete [Unknown]
  - Arthralgia [Not Recovered/Not Resolved]
  - Injection site erythema [Unknown]
  - Injection site rash [Unknown]
  - Psoriasis [Unknown]
  - Skin mass [Unknown]

NARRATIVE: CASE EVENT DATE: 2016
